FAERS Safety Report 5087956-1 (Version None)
Quarter: 2006Q3

REPORT INFORMATION
  Report Type: 
  Country: None (occurrence: None)
  Receive Date: 20060727
  Receipt Date: 20060428
  Transmission Date: 20061208
  Serious: Yes (Other)
  Sender: FDA-Public Use
  Company Number: 2006057986

PATIENT
  Age: 54 Year
  Sex: Female
  Weight: 68.0396 kg

DRUGS (3)
  1. LYRICA [Suspect]
     Indication: COMPLEX REGIONAL PAIN SYNDROME
     Dosage: 150 MG (75 MG,3 IN 1 D),ORAL
     Route: 048
     Dates: start: 20060422, end: 20060425
  2. LYRICA [Suspect]
     Indication: HYPOAESTHESIA
     Dosage: 150 MG (75 MG,3 IN 1 D),ORAL
     Route: 048
     Dates: start: 20060422, end: 20060425
  3. FLEXERIL [Concomitant]

REACTIONS (6)
  - DRY EYE [None]
  - DRY MOUTH [None]
  - EYE DISCHARGE [None]
  - EYE INFECTION [None]
  - SINUS DISORDER [None]
  - VISION BLURRED [None]
